FAERS Safety Report 6184466-5 (Version None)
Quarter: 2009Q2

REPORT INFORMATION
  Report Type: 
  Country: None (occurrence: None)
  Receive Date: 20090507
  Receipt Date: 20090507
  Transmission Date: 20091009
  Serious: No
  Sender: FDA-Public Use
  Company Number: None

PATIENT
  Age: 3 Year
  Sex: Male

DRUGS (1)
  1. FLUORITAB CHERRY 0.5MG FLUORITAB CO. [Suspect]
     Indication: DENTAL FLUORIDE THERAPY
     Dosage: 1 DAILY
     Dates: start: 20090317, end: 20090320

REACTIONS (1)
  - MEDICATION ERROR [None]
